FAERS Safety Report 9006149 (Version 2)
Quarter: 2013Q1

REPORT INFORMATION
  Report Type: Spontaneous
  Country: US (occurrence: US)
  Receive Date: 20130109
  Receipt Date: 20130124
  Transmission Date: 20140127
  Serious: No
  Sender: FDA-Public Use
  Company Number: US-009507513-1301USA000015

PATIENT
  Age: 66 Year
  Sex: Female

DRUGS (1)
  1. ASMANEX TWISTHALER [Suspect]
     Indication: BRONCHITIS
     Dosage: 1 DF, BID
     Route: 055
     Dates: start: 20121228

REACTIONS (1)
  - Cough [Not Recovered/Not Resolved]
